FAERS Safety Report 5754977-2 (Version None)
Quarter: 2008Q2

REPORT INFORMATION
  Report Type: 
  Country: None (occurrence: None)
  Receive Date: 20080602
  Receipt Date: 20080521
  Transmission Date: 20081010
  Serious: Yes (Hospitalization)
  Sender: FDA-Public Use
  Company Number: BR-ELI_LILLY_AND_COMPANY-BR200805004187

PATIENT
  Sex: Male
  Weight: 85 kg

DRUGS (4)
  1. ZYPREXA [Suspect]
     Indication: SCHIZOPHRENIA
     Dosage: UNK, DAILY (1/D)
     Route: 048
     Dates: start: 20060113
  2. HALDOL [Concomitant]
     Dosage: UNK, UNKNOWN
     Route: 065
  3. DIAZEPAM [Concomitant]
     Dosage: UNK, UNKNOWN
     Route: 065
  4. BIPERIDEN HYDROCHLORIDE TAB [Concomitant]
     Dosage: UNK, UNKNOWN
     Route: 065

REACTIONS (8)
  - ABNORMAL BEHAVIOUR [None]
  - AFFECTIVE DISORDER [None]
  - ANTISOCIAL BEHAVIOUR [None]
  - PERSONALITY CHANGE [None]
  - SOMNOLENCE [None]
  - THINKING ABNORMAL [None]
  - TREMOR [None]
  - WEIGHT INCREASED [None]
